FAERS Safety Report 4321028-6 (Version None)
Quarter: 2004Q1

REPORT INFORMATION
  Report Type: 
  Country: None (occurrence: None)
  Receive Date: 20040303
  Receipt Date: 20030726
  Transmission Date: 20041129
  Serious: Yes (Death, Life-Threatening)
  Sender: FDA-Public Use
  Company Number: 2003SA000133

PATIENT
  Age: 31 Year
  Sex: Male
  Weight: 80 kg

DRUGS (3)
  1. THYMOGLOBULIN [Suspect]
     Indication: MISMATCHED DONOR BONE MARROW TRANSPLANTATION THERAPY
     Dosage: 5MG/KG DAILY INTRAVENOUS
     Route: 042
     Dates: start: 20030724, end: 20030724
  2. THIOTEPA [Concomitant]
  3. FLUDARABINE PHOSPHATE [Concomitant]

REACTIONS (13)
  - ACUTE RESPIRATORY DISTRESS SYNDROME [None]
  - ANAPHYLACTIC SHOCK [None]
  - ANURIA [None]
  - CHEST X-RAY ABNORMAL [None]
  - CHILLS [None]
  - COMA [None]
  - DIALYSIS [None]
  - INFUSION RELATED REACTION [None]
  - LACTIC ACIDOSIS [None]
  - OLIGURIA [None]
  - POST PROCEDURAL COMPLICATION [None]
  - PYREXIA [None]
  - WHITE BLOOD CELL COUNT DECREASED [None]
